FAERS Safety Report 12173408 (Version 13)
Quarter: 2017Q4

REPORT INFORMATION
  Report Type: Report from Study
  Country: US (occurrence: US)
  Receive Date: 20160311
  Receipt Date: 20171127
  Transmission Date: 20180320
  Serious: Yes (Other)
  Sender: FDA-Public Use
  Company Number: US-SA-2016SA036647

PATIENT
  Age: 34 Year
  Sex: Male

DRUGS (3)
  1. PERCOCET [Concomitant]
     Active Substance: ACETAMINOPHEN\OXYCODONE HYDROCHLORIDE
     Route: 065
  2. CEFDINIR. [Suspect]
     Active Substance: CEFDINIR
     Route: 065
  3. LEMTRADA [Suspect]
     Active Substance: ALEMTUZUMAB
     Indication: MULTIPLE SCLEROSIS
     Route: 041
     Dates: start: 20160208, end: 20160212

REACTIONS (46)
  - Feeling abnormal [Unknown]
  - Pain in extremity [Not Recovered/Not Resolved]
  - Back pain [Not Recovered/Not Resolved]
  - Oropharyngeal pain [Recovered/Resolved]
  - Fatigue [Unknown]
  - Pharyngitis streptococcal [Recovered/Resolved]
  - Erythema [Unknown]
  - Cerebral disorder [Not Recovered/Not Resolved]
  - Anxiety [Unknown]
  - Epistaxis [Recovered/Resolved]
  - Feeling of body temperature change [Unknown]
  - Pain [Unknown]
  - Ear infection [Not Recovered/Not Resolved]
  - Pain [Not Recovered/Not Resolved]
  - Gastroenteritis viral [Recovering/Resolving]
  - Bone pain [Unknown]
  - Blood pressure increased [Unknown]
  - Pyrexia [Recovered/Resolved]
  - Weight decreased [Unknown]
  - Feeling cold [Recovered/Resolved]
  - Malaise [Unknown]
  - Respiratory disorder [Unknown]
  - Nasopharyngitis [Recovered/Resolved]
  - Gait disturbance [Unknown]
  - Contusion [Not Recovered/Not Resolved]
  - Memory impairment [Not Recovered/Not Resolved]
  - Peripheral coldness [Unknown]
  - Laboratory test abnormal [Recovered/Resolved]
  - Body temperature abnormal [Unknown]
  - Tinnitus [Unknown]
  - Heart rate increased [Not Recovered/Not Resolved]
  - Musculoskeletal discomfort [Unknown]
  - Pain of skin [Unknown]
  - Upper-airway cough syndrome [Not Recovered/Not Resolved]
  - Nervousness [Unknown]
  - Vein disorder [Not Recovered/Not Resolved]
  - Weight decreased [Recovered/Resolved]
  - Discomfort [Unknown]
  - Diarrhoea [Unknown]
  - Nausea [Recovered/Resolved]
  - Paternal exposure timing unspecified [Unknown]
  - Staphylococcal infection [Recovered/Resolved]
  - Depression [Unknown]
  - Malaise [Recovered/Resolved]
  - Dysgeusia [Recovered/Resolved]
  - Headache [Unknown]

NARRATIVE: CASE EVENT DATE: 2016
